FAERS Safety Report 11521918 (Version 2)
Quarter: 2017Q1

REPORT INFORMATION
  Report Type: Spontaneous
  Country: US (occurrence: US)
  Receive Date: 20150918
  Receipt Date: 20170214
  Transmission Date: 20170428
  Serious: Yes (Hospitalization)
  Sender: FDA-Public Use
  Company Number: US-LUNDBECK-DKLU2004150

PATIENT
  Sex: Male

DRUGS (3)
  1. NORTHERA [Suspect]
     Active Substance: DROXIDOPA
     Indication: SYNCOPE
     Route: 065
  2. ASA [Suspect]
     Active Substance: ASPIRIN
     Indication: PRODUCT USED FOR UNKNOWN INDICATION
     Route: 065
  3. NORTHERA [Suspect]
     Active Substance: DROXIDOPA
     Route: 048
     Dates: start: 20150716

REACTIONS (8)
  - Insomnia [Unknown]
  - Dysarthria [Unknown]
  - Diarrhoea [Unknown]
  - Drug ineffective [Unknown]
  - Hypertension [Recovered/Resolved]
  - Drooling [Unknown]
  - Condition aggravated [Unknown]
  - Constipation [Recovered/Resolved]
